FAERS Safety Report 9936770 (Version 1)
Quarter: 2014Q1

REPORT INFORMATION
  Report Type: Spontaneous
  Country: US (occurrence: None)
  Receive Date: 20140109
  Receipt Date: 20140109
  Transmission Date: 20141002
  Serious: Yes (Other)
  Sender: FDA-Public Use
  Company Number: M-13-042

PATIENT
  Sex: Female

DRUGS (1)
  1. BACLOFEN TABLETS USP [Suspect]

REACTIONS (1)
  - Dizziness [None]
